FAERS Safety Report 22536889 (Version 1)
Quarter: 2023Q2

REPORT INFORMATION
  Report Type: Spontaneous
  Country: US (occurrence: US)
  Receive Date: 20230608
  Receipt Date: 20230608
  Transmission Date: 20230721
  Serious: No
  Sender: FDA-Public Use
  Company Number: US-INCYTE CORPORATION-2023IN005051

PATIENT

DRUGS (1)
  1. OPZELURA [Suspect]
     Active Substance: RUXOLITINIB PHOSPHATE
     Indication: Myelofibrosis
     Route: 065

REACTIONS (5)
  - Skin discolouration [Unknown]
  - Skin irritation [Unknown]
  - Skin fissures [Unknown]
  - Drug ineffective for unapproved indication [Unknown]
  - Off label use [Unknown]
